FAERS Safety Report 18020364 (Version 4)
Quarter: 2020Q3

REPORT INFORMATION
  Report Type: Spontaneous
  Country: DE (occurrence: DE)
  Receive Date: 20200714
  Receipt Date: 20200810
  Transmission Date: 20201103
  Serious: Yes (Hospitalization, Disabling, Other)
  Sender: FDA-Public Use
  Company Number: DE-PFIZER INC-2020265950

PATIENT
  Age: 76 Year
  Sex: Male
  Weight: 83 kg

DRUGS (12)
  1. PYRIDOSTIGMINE BROMIDE. [Suspect]
     Active Substance: PYRIDOSTIGMINE BROMIDE
     Dosage: UNK
  2. METOHEXAL [METOPROLOL TARTRATE] [Concomitant]
     Active Substance: METOPROLOL TARTRATE
     Dosage: UNK
  3. KEYTRUDA [Suspect]
     Active Substance: PEMBROLIZUMAB
     Indication: METASTATIC RENAL CELL CARCINOMA
     Dosage: 200 MG, CYCLIC (EVERY 3 WEEKS)
     Dates: start: 20200416, end: 20200511
  4. MACROGOL [Concomitant]
     Active Substance: POLYETHYLENE GLYCOLS
     Dosage: UNK
  5. ACETYLSALICYLIC ACID [Concomitant]
     Active Substance: ASPIRIN
     Dosage: UNK
  6. LAXOBERAL [Concomitant]
     Active Substance: SODIUM PICOSULFATE
     Dosage: UNK
  7. ACC [ACETYLCYSTEINE] [Concomitant]
     Active Substance: ACETYLCYSTEINE
     Dosage: UNK
  8. ATORVASTATIN [Concomitant]
     Active Substance: ATORVASTATIN
     Dosage: UNK
  9. AXITINIB [Suspect]
     Active Substance: AXITINIB
     Indication: RENAL CELL CARCINOMA
     Dosage: 5 MG, 2X/DAY
     Dates: start: 20200416, end: 20200507
  10. INNOHEP [Concomitant]
     Active Substance: TINZAPARIN SODIUM
     Dosage: 4500 IU
  11. DOMPERIDONE [Concomitant]
     Active Substance: DOMPERIDONE
     Dosage: UNK
  12. DICLOFENAC [Concomitant]
     Active Substance: DICLOFENAC
     Dosage: UNK

REACTIONS (14)
  - Osteolysis [Unknown]
  - Vitamin B12 decreased [Unknown]
  - Lower motor neurone lesion [Unknown]
  - Diarrhoea [Unknown]
  - Hypercoagulation [Unknown]
  - Myocardial necrosis marker increased [Unknown]
  - Neoplasm progression [Unknown]
  - Embolic cerebellar infarction [Unknown]
  - Embolic cerebral infarction [Unknown]
  - Cardiotoxicity [Unknown]
  - Cardiomyopathy [Unknown]
  - Myasthenia gravis [Recovering/Resolving]
  - Dyspnoea [Unknown]
  - Immune-mediated myositis [Unknown]

NARRATIVE: CASE EVENT DATE: 202005
